FAERS Safety Report 9102980 (Version 1)
Quarter: 2013Q1

REPORT INFORMATION
  Report Type: Spontaneous
  Country: US (occurrence: US)
  Receive Date: 20130219
  Receipt Date: 20130219
  Transmission Date: 20140127
  Serious: Yes (Other)
  Sender: FDA-Public Use
  Company Number: US-PFIZER INC-2013061576

PATIENT
  Age: 83 Year
  Sex: Female
  Weight: 83.45 kg

DRUGS (17)
  1. CELEBREX [Suspect]
     Dosage: 200 MG, 2X/DAY
     Route: 048
  2. NEURONTIN [Suspect]
     Dosage: 300 MG, 2X/DAY
     Route: 048
  3. ZOLOFT [Suspect]
     Dosage: 100 MG, 1X/DAY
     Route: 048
  4. LIPITOR [Suspect]
     Dosage: 40 MG, 1X/DAY
     Route: 048
  5. ULTRAM [Concomitant]
     Dosage: 50 MG, UNK
  6. ASPIRIN [Concomitant]
     Dosage: UNK, 1X/DAY
  7. ZETIA [Concomitant]
     Dosage: 10 MG, UNK
  8. SINGULAIR [Concomitant]
     Dosage: 10 MG, 2X/DAY
  9. HYDROCHLOROTHIAZIDE [Concomitant]
     Dosage: 25 MG, UNK
  10. FLONASE [Concomitant]
     Dosage: UNK,NASAL SPRAY
     Route: 045
  11. RAMIPRIL [Concomitant]
     Dosage: 10 MG, UNK
  12. SYNTHROID [Concomitant]
     Indication: THYROID DISORDER
     Dosage: UNK
  13. PREVACID [Concomitant]
     Indication: GASTRIC DISORDER
     Dosage: UNK
  14. DULERA [Concomitant]
     Dosage: UNK,INHALER
  15. MUCINEX DM [Concomitant]
     Dosage: UNK
  16. MECLIZINE [Concomitant]
     Dosage: 25 MG, UNK
  17. CYCLOBENZAPRINE [Concomitant]
     Dosage: 10 MG, UNK

REACTIONS (7)
  - Pulmonary congestion [Unknown]
  - Arthropathy [Unknown]
  - Thyroid disorder [Unknown]
  - Vertigo [Unknown]
  - Gastrointestinal disorder [Unknown]
  - Back disorder [Unknown]
  - Dyspnoea [Unknown]
